FAERS Safety Report 4657615-5 (Version None)
Quarter: 2005Q2

REPORT INFORMATION
  Report Type: 
  Country: None (occurrence: None)
  Receive Date: 20050506
  Receipt Date: 20050426
  Transmission Date: 20051028
  Serious: Yes (Hospitalization)
  Sender: FDA-Public Use
  Company Number: TPA2005A00442

PATIENT
  Sex: Male

DRUGS (3)
  1. ACTOS [Suspect]
     Dosage: 30 MG, 1 IN 1 D, PER ORAL
     Route: 048
  2. GLUCOPHAGE [Concomitant]
  3. AVANDIA [Concomitant]

REACTIONS (2)
  - CARDIAC FAILURE CONGESTIVE [None]
  - FLUID RETENTION [None]
